FAERS Safety Report 5682139-6 (Version None)
Quarter: 2008Q1

REPORT INFORMATION
  Report Type: 
  Country: None (occurrence: None)
  Receive Date: 20080327
  Receipt Date: 20080324
  Transmission Date: 20080703
  Serious: Yes (Other)
  Sender: FDA-Public Use
  Company Number: US-RANBAXY-2008US-14004

PATIENT

DRUGS (6)
  1. ISOTRETINOIN [Suspect]
     Indication: DRUG USE FOR UNKNOWN INDICATION
     Dosage: 30 MG, UNK
     Route: 048
  2. ISOTRETINOIN [Suspect]
     Dosage: 40 MG, UNK
     Route: 048
  3. ISOTRETINOIN [Suspect]
     Dosage: 40 MG, UNK
  4. BARR CLARAVIS [Suspect]
     Indication: DRUG USE FOR UNKNOWN INDICATION
  5. AMNESTEEM [Suspect]
     Indication: DRUG USE FOR UNKNOWN INDICATION
  6. BARR CLARAVIS [Suspect]

REACTIONS (1)
  - EYE LASER SURGERY [None]
